FAERS Safety Report 25808182 (Version 2)
Quarter: 2025Q4

REPORT INFORMATION
  Report Type: Spontaneous
  Country: IN (occurrence: IN)
  Receive Date: 20250916
  Receipt Date: 20251113
  Transmission Date: 20260118
  Serious: Yes (Death, Other)
  Sender: PFIZER
  Company Number: IN-PFIZER INC-PV202500111331

PATIENT
  Age: 62 Year
  Sex: Female

DRUGS (1)
  1. CRIZOTINIB [Suspect]
     Active Substance: CRIZOTINIB
     Dosage: 250 MG, 2X/DAY
     Route: 048

REACTIONS (4)
  - Death [Fatal]
  - Abdominal infection [Unknown]
  - Dehydration [Unknown]
  - Gastric infection [Unknown]

NARRATIVE: CASE EVENT DATE: 20251016
